FAERS Safety Report 18757433 (Version 1)
Quarter: 2021Q1

REPORT INFORMATION
  Report Type: Spontaneous
  Country: US (occurrence: US)
  Receive Date: 20210119
  Receipt Date: 20210119
  Transmission Date: 20210419
  Serious: Yes (Hospitalization)
  Sender: FDA-Public Use
  Company Number: US-LUPIN PHARMACEUTICALS INC.-2021-00248

PATIENT
  Age: 64 Year
  Sex: Male

DRUGS (4)
  1. POTASSIUM [Suspect]
     Active Substance: POTASSIUM
     Indication: HYPOKALAEMIA
     Dosage: UNK (MULTIPLE RUNS)
     Route: 042
  2. MESNA. [Concomitant]
     Active Substance: MESNA
     Indication: CHEMOTHERAPY SIDE EFFECT PROPHYLAXIS
     Dosage: RECEIVED 5 CYCLES AS PART OF AIM REGIMEN
     Route: 065
  3. IFOSFAMIDE. [Concomitant]
     Active Substance: IFOSFAMIDE
     Indication: SOFT TISSUE NEOPLASM
     Dosage: UNK (CUMULATIVE DOSE: 30 G/M2; RECEIVED 5 CYCLES AS PART OF AIM REGIMEN)
     Route: 065
  4. ADRIAMYCIN [Concomitant]
     Active Substance: DOXORUBICIN HYDROCHLORIDE
     Indication: SOFT TISSUE NEOPLASM
     Dosage: UNK (RECEIVED 5 CYCLES AS PART OF AIM REGIMEN)
     Route: 065

REACTIONS (1)
  - Drug ineffective [Unknown]
